FAERS Safety Report 7410781-0 (Version None)
Quarter: 2011Q2

REPORT INFORMATION
  Report Type: 
  Country: None (occurrence: None)
  Receive Date: 20110413
  Receipt Date: 20110406
  Transmission Date: 20111010
  Serious: No
  Sender: FDA-Public Use
  Company Number: BR-US-EMD SERONO, INC.-7012050

PATIENT
  Sex: Female

DRUGS (7)
  1. REBIF [Suspect]
     Route: 058
     Dates: start: 20100101
  2. REBIF [Suspect]
     Indication: RELAPSING-REMITTING MULTIPLE SCLEROSIS
     Route: 058
     Dates: start: 20090304
  3. ACONITUM [Concomitant]
  4. NATRIUM MURIATIC [Concomitant]
  5. SILICEA [Concomitant]
  6. CYMBALTA [Concomitant]
  7. RIVOTRIL [Concomitant]

REACTIONS (5)
  - HEADACHE [None]
  - MULTIPLE SCLEROSIS RELAPSE [None]
  - CANDIDIASIS [None]
  - PAIN IN EXTREMITY [None]
  - ALOPECIA [None]
